FAERS Safety Report 7503833-8 (Version None)
Quarter: 2011Q2

REPORT INFORMATION
  Report Type: 
  Country: None (occurrence: None)
  Receive Date: 20110525
  Receipt Date: 20110516
  Transmission Date: 20111010
  Serious: Yes (Death, Hospitalization)
  Sender: FDA-Public Use
  Company Number: US-BRISTOL-MYERS SQUIBB COMPANY-15768922

PATIENT
  Age: 65 Year
  Sex: Female
  Weight: 33 kg

DRUGS (6)
  1. PACLITAXEL [Suspect]
     Indication: NON-SMALL CELL LUNG CANCER
     Dosage: NO OF INFUSIONS:2
     Route: 042
     Dates: start: 20110120, end: 20110210
  2. CETUXIMAB [Suspect]
     Indication: NON-SMALL CELL LUNG CANCER
     Dosage: NO OF INFUSIONS:4
     Route: 042
     Dates: start: 20110120, end: 20110210
  3. POTASSIUM CHLORIDE [Concomitant]
     Route: 065
  4. CARBOPLATIN [Suspect]
     Indication: NON-SMALL CELL LUNG CANCER
     Dosage: NO OF INFUSIONS:2
     Route: 042
     Dates: start: 20110120, end: 20110210
  5. MULTI-VITAMIN [Concomitant]
     Indication: MEDICAL DIET
     Route: 065
  6. NEULASTA [Concomitant]
     Indication: NEUTROPHIL COUNT DECREASED
     Route: 065
     Dates: start: 20110211, end: 20110211

REACTIONS (1)
  - THROMBOCYTOPENIA [None]
